FAERS Safety Report 8772753 (Version 1)
Quarter: 2012Q4

REPORT INFORMATION
  Report Type: 
  Country: US (occurrence: US)
  Receive Date: 20120904
  Receipt Date: 20120904
  Transmission Date: 20130627
  Serious: Yes (Hospitalization)
  Sender: FDA-Public Use
  Company Number: US-ELI_LILLY_AND_COMPANY-US201208004661

PATIENT
  Age: 64 Year
  Sex: Male
  Weight: 73.02 kg

DRUGS (8)
  1. EFFIENT [Suspect]
     Dosage: 10 mg, qd
     Dates: start: 20110907
  2. ASA [Concomitant]
     Dosage: 325 mg, UNK
  3. COREG [Concomitant]
     Dosage: 3.125 mg, bid
  4. CARDIO [Concomitant]
     Dosage: UNK
  5. FISH OIL [Concomitant]
     Dosage: UNK
  6. GLUCOSAMINE [Concomitant]
     Dosage: UNK
  7. NTG [Concomitant]
     Dosage: UNK, prn
  8. ZOCOR [Concomitant]

REACTIONS (1)
  - Muscle strain [Unknown]
